FAERS Safety Report 12259520 (Version 1)
Quarter: 2016Q2

REPORT INFORMATION
  Report Type: Spontaneous
  Country: US (occurrence: US)
  Receive Date: 20160412
  Receipt Date: 20160412
  Transmission Date: 20160815
  Serious: No
  Sender: FDA-Public Use
  Company Number: US-SA-2015SA113801

PATIENT
  Age: 35 Year
  Sex: Female

DRUGS (2)
  1. MAGNESIUM [Interacting]
     Active Substance: MAGNESIUM
     Indication: MINERAL SUPPLEMENTATION
     Route: 065
  2. ALLEGRA ALLERGY [Suspect]
     Active Substance: FEXOFENADINE HYDROCHLORIDE
     Indication: SEASONAL ALLERGY
     Dosage: START DATE:SEVERAL YEARS AGO
     Route: 048

REACTIONS (2)
  - Labelled drug-drug interaction medication error [Unknown]
  - Drug ineffective [Unknown]
